FAERS Safety Report 20874887 (Version 1)
Quarter: 2022Q2

REPORT INFORMATION
  Report Type: Report from Study
  Country: US (occurrence: US)
  Receive Date: 20220526
  Receipt Date: 20220526
  Transmission Date: 20220721
  Serious: Yes (Hospitalization, Other)
  Sender: FDA-Public Use
  Company Number: US-GILEAD-2022-0582235

PATIENT
  Sex: Female

DRUGS (13)
  1. AZTREONAM LYSINE [Suspect]
     Active Substance: AZTREONAM LYSINE
     Indication: Bronchiectasis
     Dosage: 75 MG, TID, 28 DAYS ON 28 DAYS OFF
     Route: 055
  2. TOBI [Concomitant]
     Active Substance: TOBRAMYCIN
  3. VIMPAT [Concomitant]
     Active Substance: LACOSAMIDE
  4. PHENOBARBITAL [Concomitant]
     Active Substance: PHENOBARBITAL
  5. DIASTAT [Concomitant]
     Active Substance: DIAZEPAM
  6. BACLOFEN [Concomitant]
     Active Substance: BACLOFEN
  7. FAMOTIDINE [Concomitant]
     Active Substance: FAMOTIDINE
  8. CLONAZEPAM [Concomitant]
     Active Substance: CLONAZEPAM
  9. OMEPRAZOLE [Concomitant]
     Active Substance: OMEPRAZOLE
  10. MIRALAX [Concomitant]
     Active Substance: POLYETHYLENE GLYCOL 3350
  11. CULTURELLE [Concomitant]
     Active Substance: LACTOBACILLUS RHAMNOSUS
  12. ZONISAMIDE [Concomitant]
     Active Substance: ZONISAMIDE
  13. VITAMIN C [Concomitant]
     Active Substance: ASCORBIC ACID

REACTIONS (2)
  - Pneumonia [Unknown]
  - Off label use [Not Recovered/Not Resolved]
